FAERS Safety Report 5754570-1 (Version None)
Quarter: 2008Q2

REPORT INFORMATION
  Report Type: 
  Country: None (occurrence: None)
  Receive Date: 20080530
  Receipt Date: 20080519
  Transmission Date: 20081010
  Serious: Yes (Hospitalization)
  Sender: FDA-Public Use
  Company Number: US-PFIZER INC-2008043289

PATIENT
  Age: 54 Year
  Sex: Female
  Weight: 56 kg

DRUGS (1)
  1. LYRICA [Suspect]
     Indication: FIBROMYALGIA

REACTIONS (3)
  - LETHARGY [None]
  - MENTAL STATUS CHANGES [None]
  - TREATMENT NONCOMPLIANCE [None]
